FAERS Safety Report 20989198 (Version 6)
Quarter: 2022Q3

REPORT INFORMATION
  Report Type: Report from Study
  Country: CA (occurrence: CA)
  Receive Date: 20220621
  Receipt Date: 20220811
  Transmission Date: 20221027
  Serious: Yes (Other)
  Sender: FDA-Public Use
  Company Number: CA-GILEAD-2022-0584289

PATIENT
  Age: 61 Year
  Sex: Female

DRUGS (11)
  1. SACITUZUMAB GOVITECAN [Suspect]
     Active Substance: SACITUZUMAB GOVITECAN
     Indication: Triple negative breast cancer
     Dosage: 680 MG
     Route: 042
     Dates: start: 20220527
  2. SACITUZUMAB GOVITECAN [Suspect]
     Active Substance: SACITUZUMAB GOVITECAN
     Dosage: 510 MG
     Route: 042
     Dates: start: 20220527
  3. SACITUZUMAB GOVITECAN [Suspect]
     Active Substance: SACITUZUMAB GOVITECAN
     Dosage: 510 MG, CYCLE 2, DAY 1
     Route: 042
     Dates: start: 20220707
  4. ACETAMINOPHEN [Concomitant]
     Active Substance: ACETAMINOPHEN
     Dosage: 975 MG
     Route: 048
  5. ACETAMINOPHEN [Concomitant]
     Active Substance: ACETAMINOPHEN
     Dosage: 975 MG PO (PRE-MEDICATION PRIOR TO TRODELVY)
  6. DEXAMETHASONE [Concomitant]
     Active Substance: DEXAMETHASONE
     Dosage: UNK
     Route: 048
  7. DEXAMETHASONE [Concomitant]
     Active Substance: DEXAMETHASONE
     Dosage: AS DIRECTED BY MD PO (PRE-MEDICATION PRIOR TO TRODELVY)
  8. ONDANSETRON [Concomitant]
     Active Substance: ONDANSETRON
     Dosage: UNK
     Route: 048
  9. ONDANSETRON [Concomitant]
     Active Substance: ONDANSETRON
     Dosage: AS DIRECTED BY MD PO (PRE-MEDICATION PRIOR TO TRODELVY)
  10. DIPHENHYDRAMINE [Concomitant]
     Active Substance: DIPHENHYDRAMINE
     Dosage: 50 MG
     Route: 048
     Dates: start: 20220707
  11. DIPHENHYDRAMINE [Concomitant]
     Active Substance: DIPHENHYDRAMINE
     Dosage: AS DIRECTED BY MD PO (PRE-MEDICATION PRIOR TO TRODELVY)

REACTIONS (16)
  - Myelosuppression [Not Recovered/Not Resolved]
  - Thrombocytopenia [Not Recovered/Not Resolved]
  - Neutropenia [Not Recovered/Not Resolved]
  - Presyncope [Unknown]
  - Malaise [Unknown]
  - White blood cell count decreased [Unknown]
  - Red blood cell count decreased [Unknown]
  - Dizziness [Unknown]
  - Vomiting [Unknown]
  - White blood cell count abnormal [Unknown]
  - Platelet count decreased [Unknown]
  - Inappropriate schedule of product administration [Recovered/Resolved]
  - Heart rate increased [Recovered/Resolved]
  - Weight fluctuation [Unknown]
  - Blood test abnormal [Unknown]
  - Product dose omission issue [Unknown]

NARRATIVE: CASE EVENT DATE: 20220707
